FAERS Safety Report 21641450 (Version 1)
Quarter: 2022Q4

REPORT INFORMATION
  Report Type: Report from Study
  Country: BR (occurrence: BR)
  Receive Date: 20221125
  Receipt Date: 20221125
  Transmission Date: 20230113
  Serious: Yes (Other)
  Sender: FDA-Public Use
  Company Number: BR-JNJFOC-20221142350

PATIENT
  Sex: Female
  Weight: 59 kg

DRUGS (9)
  1. REMICADE [Suspect]
     Active Substance: INFLIXIMAB
     Indication: Crohn^s disease
     Route: 041
     Dates: start: 2017
  2. ADIPEPT [Concomitant]
  3. SERTRALINE HYDROCHLORIDE [Concomitant]
     Active Substance: SERTRALINE HYDROCHLORIDE
  4. CLOZAPINE [Concomitant]
     Active Substance: CLOZAPINE
  5. ROSUVASTATIN CALCIUM [Concomitant]
     Active Substance: ROSUVASTATIN CALCIUM
  6. EMPROL XR [Concomitant]
  7. HYDRALAZINE [Concomitant]
     Active Substance: HYDRALAZINE HYDROCHLORIDE
  8. FENOFIBRATE [Concomitant]
     Active Substance: FENOFIBRATE
  9. MONOCORDIL [Concomitant]
     Active Substance: ISOSORBIDE MONONITRATE

REACTIONS (6)
  - Intestinal resection [Unknown]
  - Pain [Unknown]
  - Diarrhoea [Unknown]
  - Vomiting [Unknown]
  - Gastrointestinal inflammation [Unknown]
  - Off label use [Unknown]
